FAERS Safety Report 12188568 (Version 1)
Quarter: 2016Q1

REPORT INFORMATION
  Report Type: Spontaneous
  Country: US (occurrence: US)
  Receive Date: 20160317
  Receipt Date: 20160317
  Transmission Date: 20160526
  Serious: Yes (Other)
  Sender: FDA-Public Use
  Company Number: US-BAYER-2016-047136

PATIENT
  Age: 66 Year
  Sex: Male
  Weight: 72.56 kg

DRUGS (5)
  1. VITAMIN C [Concomitant]
     Active Substance: ASCORBIC ACID
  2. CHONDROITIN [Concomitant]
     Active Substance: CHONDROITIN
  3. FISH OIL [Concomitant]
     Active Substance: FISH OIL
  4. ALEVE [Suspect]
     Active Substance: NAPROXEN SODIUM
     Dosage: 1 DF, QD
     Route: 048
     Dates: start: 2004, end: 201602
  5. GLUCOSAMINE [Concomitant]
     Active Substance: GLUCOSAMINE

REACTIONS (7)
  - Product use issue [None]
  - Pain in extremity [Recovered/Resolved]
  - Muscular weakness [Recovered/Resolved]
  - Musculoskeletal pain [Recovered/Resolved]
  - Product use issue [Recovered/Resolved]
  - Discomfort [Recovered/Resolved]
  - Tremor [Recovered/Resolved]

NARRATIVE: CASE EVENT DATE: 2004
